FAERS Safety Report 11128896 (Version 3)
Quarter: 2015Q3

REPORT INFORMATION
  Report Type: Spontaneous
  Country: JP (occurrence: JP)
  Receive Date: 20150521
  Receipt Date: 20150703
  Transmission Date: 20151125
  Serious: Yes (Hospitalization, Other)
  Sender: FDA-Public Use
  Company Number: JP-ASTRAZENECA-2015SE50226

PATIENT
  Age: 28344 Day
  Sex: Female
  Weight: 63 kg

DRUGS (23)
  1. PREDONINE [Suspect]
     Active Substance: PREDNISOLONE\PREDNISOLONE ACETATE\PREDNISOLONE SODIUM SUCCINATE
     Indication: POLYMYALGIA RHEUMATICA
     Route: 048
     Dates: start: 2008
  2. ABILIFY [Concomitant]
     Active Substance: ARIPIPRAZOLE
  3. CELECOX [Concomitant]
     Active Substance: CELECOXIB
  4. PREDONINE [Suspect]
     Active Substance: PREDNISOLONE\PREDNISOLONE ACETATE\PREDNISOLONE SODIUM SUCCINATE
     Indication: RHEUMATOID ARTHRITIS
     Route: 048
     Dates: start: 2008
  5. PURSENNID [Concomitant]
     Active Substance: SENNOSIDES A AND B
  6. BESACOLIN [Concomitant]
     Active Substance: BETHANECHOL CHLORIDE
  7. TOLEDOMIN [Concomitant]
     Active Substance: MILNACIPRAN HYDROCHLORIDE
  8. LIMARMONE [Concomitant]
  9. LENDORMIN [Concomitant]
     Active Substance: BROTIZOLAM
  10. SEROQUEL [Suspect]
     Active Substance: QUETIAPINE FUMARATE
     Indication: DEPRESSION
     Route: 048
     Dates: start: 20150512
  11. MAGNESIUM [Concomitant]
     Active Substance: MAGNESIUM
  12. DEPAS [Concomitant]
     Active Substance: ETIZOLAM
  13. NORVASC [Concomitant]
     Active Substance: AMLODIPINE BESYLATE
  14. GASTER [Concomitant]
     Active Substance: FAMOTIDINE
  15. EBRANTIL [Concomitant]
     Active Substance: URAPIDIL
  16. LEXAPRO [Concomitant]
     Active Substance: ESCITALOPRAM OXALATE
  17. SEROQUEL [Suspect]
     Active Substance: QUETIAPINE FUMARATE
     Indication: DEPRESSION
     Route: 048
     Dates: end: 20150430
  18. PRALIA [Concomitant]
     Active Substance: DENOSUMAB
     Dates: start: 20140213
  19. ALOSENN [Concomitant]
     Active Substance: SENNA LEAF
  20. LYRICA [Concomitant]
     Active Substance: PREGABALIN
  21. DENOTAS [Concomitant]
     Active Substance: CALCIUM CARBONATE\CHOLECALCIFEROL\MAGNESIUM CARBONATE
     Route: 048
     Dates: start: 201402
  22. GLAKAY [Concomitant]
     Active Substance: MENATETRENONE
  23. AROMASIN [Concomitant]
     Active Substance: EXEMESTANE

REACTIONS (9)
  - Renal cyst [Unknown]
  - Pulmonary embolism [Recovered/Resolved]
  - Pulmonary fibrosis [Unknown]
  - Blood albumin decreased [Unknown]
  - Insomnia [Unknown]
  - Hepatic cyst [Unknown]
  - Intentional product misuse [Unknown]
  - Off label use [Unknown]
  - Uterine leiomyoma [Unknown]

NARRATIVE: CASE EVENT DATE: 20150427
